FAERS Safety Report 26158569 (Version 1)
Quarter: 2025Q4

REPORT INFORMATION
  Report Type: Spontaneous
  Country: US (occurrence: None)
  Receive Date: 20251215
  Receipt Date: 20251215
  Transmission Date: 20260117
  Serious: Yes (Life-Threatening, Hospitalization)
  Sender: FDA-CTU
  Company Number: None

PATIENT
  Age: 63 Year
  Sex: Female
  Weight: 66.5 kg

DRUGS (1)
  1. TENECTEPLASE [Suspect]
     Active Substance: TENECTEPLASE
     Indication: Ischaemic stroke
     Route: 040
     Dates: start: 20251121

REACTIONS (5)
  - Cerebral haemorrhage [None]
  - Brain oedema [None]
  - Cerebral mass effect [None]
  - Blood pressure systolic [None]
  - Cerebral infarction [None]

NARRATIVE: CASE EVENT DATE: 20251121
